FAERS Safety Report 4853492-8 (Version None)
Quarter: 2005Q4

REPORT INFORMATION
  Report Type: 
  Country: None (occurrence: None)
  Receive Date: 20051214
  Receipt Date: 20051202
  Transmission Date: 20060501
  Serious: Yes (Other)
  Sender: FDA-Public Use
  Company Number: JP-BRISTOL-MYERS SQUIBB COMPANY-13203120

PATIENT
  Age: 26 Year
  Sex: Female

DRUGS (1)
  1. KENACORT-A [Suspect]
     Indication: RETINAL VEIN OCCLUSION
     Route: 031

REACTIONS (1)
  - RETINAL PIGMENT EPITHELIOPATHY [None]
